FAERS Safety Report 24389668 (Version 3)
Quarter: 2024Q4

REPORT INFORMATION
  Report Type: Spontaneous
  Country: CN (occurrence: CN)
  Receive Date: 20241003
  Receipt Date: 20241015
  Transmission Date: 20250114
  Serious: Yes (Life-Threatening, Hospitalization, Other)
  Sender: ACCORD
  Company Number: CN-Accord-448874

PATIENT
  Age: 75 Year
  Sex: Female

DRUGS (25)
  1. ESCITALOPRAM [Suspect]
     Active Substance: ESCITALOPRAM OXALATE
     Indication: Parkinson^s disease psychosis
     Dosage: 3 DAYS
     Dates: start: 20230717, end: 20230720
  2. BENSERAZIDE HYDROCHLORIDE\LEVODOPA [Suspect]
     Active Substance: BENSERAZIDE HYDROCHLORIDE\LEVODOPA
     Indication: Parkinson^s disease psychosis
     Dates: start: 20230825, end: 20230831
  3. QUETIAPINE [Concomitant]
     Active Substance: QUETIAPINE
     Indication: Parkinson^s disease psychosis
     Dates: start: 20230714, end: 20230716
  4. ESCITALOPRAM [Suspect]
     Active Substance: ESCITALOPRAM OXALATE
     Indication: Parkinson^s disease psychosis
     Dates: start: 20230814
  5. BENSERAZIDE HYDROCHLORIDE\LEVODOPA [Suspect]
     Active Substance: BENSERAZIDE HYDROCHLORIDE\LEVODOPA
     Indication: Depression
     Dates: start: 20230719, end: 20230806
  6. BENSERAZIDE HYDROCHLORIDE\LEVODOPA [Suspect]
     Active Substance: BENSERAZIDE HYDROCHLORIDE\LEVODOPA
     Indication: Parkinson^s disease psychosis
     Dates: start: 20230719, end: 20230807
  7. BENSERAZIDE HYDROCHLORIDE\LEVODOPA [Suspect]
     Active Substance: BENSERAZIDE HYDROCHLORIDE\LEVODOPA
     Indication: Parkinson^s disease psychosis
     Dates: end: 20231003
  8. BENSERAZIDE HYDROCHLORIDE\LEVODOPA [Suspect]
     Active Substance: BENSERAZIDE HYDROCHLORIDE\LEVODOPA
     Indication: Parkinson^s disease psychosis
     Dates: start: 20230825, end: 20230831
  9. BENSERAZIDE HYDROCHLORIDE\LEVODOPA [Suspect]
     Active Substance: BENSERAZIDE HYDROCHLORIDE\LEVODOPA
     Indication: Parkinson^s disease psychosis
     Dosage: ADMINISTRATION MADOPAR 0.125G BID
     Dates: start: 20230717, end: 20230718
  10. BENSERAZIDE HYDROCHLORIDE\LEVODOPA [Suspect]
     Active Substance: BENSERAZIDE HYDROCHLORIDE\LEVODOPA
     Indication: Parkinson^s disease psychosis
     Dosage: ADMINISTRATION MADOPAR 0.125G BID
     Dates: start: 20230717, end: 20230718
  11. BENSERAZIDE HYDROCHLORIDE\LEVODOPA [Suspect]
     Active Substance: BENSERAZIDE HYDROCHLORIDE\LEVODOPA
     Indication: Parkinson^s disease psychosis
     Dates: start: 20230914, end: 20230930
  12. BENSERAZIDE HYDROCHLORIDE\LEVODOPA [Suspect]
     Active Substance: BENSERAZIDE HYDROCHLORIDE\LEVODOPA
     Indication: Parkinson^s disease psychosis
     Dosage: MADOPAR 0.125G TID
     Dates: start: 20230714, end: 20230717
  13. BENSERAZIDE HYDROCHLORIDE\LEVODOPA [Suspect]
     Active Substance: BENSERAZIDE HYDROCHLORIDE\LEVODOPA
     Indication: Parkinson^s disease psychosis
     Dates: start: 20230807, end: 20230813
  14. BENSERAZIDE HYDROCHLORIDE\LEVODOPA [Suspect]
     Active Substance: BENSERAZIDE HYDROCHLORIDE\LEVODOPA
     Indication: Parkinson^s disease psychosis
     Dates: start: 20230901, end: 20230913
  15. BENSERAZIDE HYDROCHLORIDE\LEVODOPA [Suspect]
     Active Substance: BENSERAZIDE HYDROCHLORIDE\LEVODOPA
     Indication: Parkinson^s disease psychosis
     Dates: start: 20230807, end: 20230813
  16. ESCITALOPRAM [Suspect]
     Active Substance: ESCITALOPRAM OXALATE
     Indication: Parkinson^s disease psychosis
     Dosage: 10 DAYS
     Dates: start: 20230728, end: 20230807
  17. ESCITALOPRAM [Suspect]
     Active Substance: ESCITALOPRAM OXALATE
     Indication: Parkinson^s disease psychosis
     Dates: start: 20230725, end: 20230727
  18. ESCITALOPRAM [Suspect]
     Active Substance: ESCITALOPRAM OXALATE
     Indication: Parkinson^s disease psychosis
     Dosage: 3 DAYS
     Dates: start: 20230721, end: 20230724
  19. ESCITALOPRAM [Suspect]
     Active Substance: ESCITALOPRAM OXALATE
     Indication: Parkinson^s disease psychosis
     Dosage: 3 DAYS
     Dates: start: 20230811, end: 20230813
  20. ESCITALOPRAM [Suspect]
     Active Substance: ESCITALOPRAM OXALATE
     Indication: Parkinson^s disease psychosis
     Dosage: 3 DAYS
     Dates: start: 20230808, end: 20230810
  21. QUETIAPINE [Concomitant]
     Active Substance: QUETIAPINE
     Indication: Parkinson^s disease psychosis
     Dates: start: 20230725, end: 20230807
  22. QUETIAPINE [Concomitant]
     Active Substance: QUETIAPINE
     Indication: Parkinson^s disease psychosis
     Dates: start: 20230814
  23. QUETIAPINE [Concomitant]
     Active Substance: QUETIAPINE
     Indication: Parkinson^s disease psychosis
     Dates: start: 20230719, end: 20230724
  24. QUETIAPINE [Concomitant]
     Active Substance: QUETIAPINE
     Indication: Parkinson^s disease psychosis
     Dates: start: 20230808, end: 20230813
  25. QUETIAPINE [Concomitant]
     Active Substance: QUETIAPINE
     Indication: Parkinson^s disease psychosis
     Dates: start: 20230717, end: 20230718

REACTIONS (4)
  - Drug level increased [Recovered/Resolved]
  - Urinary incontinence [Unknown]
  - Serotonin syndrome [Recovering/Resolving]
  - CYP2C19 polymorphism [Recovering/Resolving]

NARRATIVE: CASE EVENT DATE: 20230808
